FAERS Safety Report 20052373 (Version 3)
Quarter: 2022Q1

REPORT INFORMATION
  Report Type: Spontaneous
  Country: FR (occurrence: FR)
  Receive Date: 20211110
  Receipt Date: 20220214
  Transmission Date: 20220424
  Serious: Yes (Death, Other)
  Sender: FDA-Public Use
  Company Number: FR-SA-SAC20210810001288

PATIENT
  Age: 90 Year
  Sex: Male

DRUGS (11)
  1. METFORMIN [Suspect]
     Active Substance: METFORMIN HYDROCHLORIDE
     Indication: Product used for unknown indication
     Dosage: 1 GRAM, QD, (1 G, ONCE DAILY (TOTAL)
     Route: 048
     Dates: start: 20210707, end: 20210707
  2. RAMIPRIL [Suspect]
     Active Substance: RAMIPRIL
     Indication: Product used for unknown indication
     Dosage: 2.5 MILLIGRAM, QD, (2.5 MG, ONCE DAILY (TOTAL)
     Route: 048
     Dates: start: 20210707, end: 20210707
  3. TAMSULOSIN [Suspect]
     Active Substance: TAMSULOSIN
     Indication: Product used for unknown indication
     Dosage: 0.4 MILLIGRAM, QD, (0.4 MG, ONCE DAILY (TOTAL)
     Route: 048
     Dates: start: 20210707, end: 20210707
  4. ELIQUIS [Suspect]
     Active Substance: APIXABAN
     Indication: Product used for unknown indication
     Dosage: 5 MILLIGRAM, QD, (5 MG, ONCE DAILY (TOTAL)
     Route: 048
     Dates: start: 20210707, end: 20210707
  5. DOLIPRANE [Suspect]
     Active Substance: ACETAMINOPHEN
     Indication: Product used for unknown indication
     Dosage: 1 G, ONCE DAILY (TOTAL)
     Route: 048
     Dates: start: 20210707, end: 20210707
  6. XARELTO [Suspect]
     Active Substance: RIVAROXABAN
     Indication: Arrhythmia
     Dosage: 10 MILLIGRAM, QD, (10 MG, ONCE DAILY (TOTAL)
     Route: 048
     Dates: start: 20210707, end: 20210707
  7. LEVOTHYROXINE [Concomitant]
     Active Substance: LEVOTHYROXINE
     Dosage: UNK
  8. POLYETHYLENE GLYCOLS [Concomitant]
     Active Substance: POLYETHYLENE GLYCOLS
     Dosage: UNK
  9. NEBIVOLOL [Concomitant]
     Active Substance: NEBIVOLOL
     Dosage: UNK
  10. IRBESARTAN [Concomitant]
     Active Substance: IRBESARTAN
     Dosage: UNK
  11. FUROSEMIDE [Concomitant]
     Active Substance: FUROSEMIDE
     Dosage: UNK

REACTIONS (2)
  - Sudden death [Fatal]
  - Wrong patient [Fatal]

NARRATIVE: CASE EVENT DATE: 20210707
